FAERS Safety Report 11698251 (Version 1)
Quarter: 2015Q4

REPORT INFORMATION
  Report Type: Spontaneous
  Country: GB (occurrence: GB)
  Receive Date: 20151104
  Receipt Date: 20151104
  Transmission Date: 20160304
  Serious: Yes (Other)
  Sender: FDA-Public Use
  Company Number: GB-BAYER-2015-454017

PATIENT
  Age: 44 Year
  Sex: Female
  Weight: 58.6 kg

DRUGS (3)
  1. MIRENA [Suspect]
     Active Substance: LEVONORGESTREL
     Indication: MENORRHAGIA
     Dosage: 20 MCG/24HR, CONT
     Route: 015
  2. LANSOPRAZOLE. [Concomitant]
     Active Substance: LANSOPRAZOLE
  3. SUMATRIPTAN. [Concomitant]
     Active Substance: SUMATRIPTAN

REACTIONS (5)
  - Chloasma [Recovering/Resolving]
  - Premenstrual syndrome [Recovering/Resolving]
  - Eczema [Recovered/Resolved]
  - Abdominal distension [Recovering/Resolving]
  - Acne [Recovered/Resolved]
